FAERS Safety Report 14198732 (Version 1)
Quarter: 2017Q4

REPORT INFORMATION
  Report Type: Spontaneous
  Country: US (occurrence: US)
  Receive Date: 20171117
  Receipt Date: 20171117
  Transmission Date: 20180321
  Serious: No
  Sender: FDA-Public Use
  Company Number: US-PFIZER INC-2017490960

PATIENT
  Age: 48 Year
  Sex: Female

DRUGS (4)
  1. LYRICA [Suspect]
     Active Substance: PREGABALIN
     Indication: SPONDYLOARTHROPATHY
     Dosage: 50MG ONE CAPSULE BY MOUTH TWO TIMES A DAY
     Route: 048
  2. OXYCODONE [Concomitant]
     Active Substance: OXYCODONE
  3. LYRICA [Suspect]
     Active Substance: PREGABALIN
     Indication: ARTHROPATHY
  4. TIZANIDINE. [Concomitant]
     Active Substance: TIZANIDINE

REACTIONS (3)
  - Product use in unapproved indication [Not Recovered/Not Resolved]
  - Pain [Not Recovered/Not Resolved]
  - Condition aggravated [Not Recovered/Not Resolved]
